FAERS Safety Report 6753664-1 (Version None)
Quarter: 2010Q2

REPORT INFORMATION
  Report Type: 
  Country: None (occurrence: None)
  Receive Date: 20100603
  Receipt Date: 20100527
  Transmission Date: 20101027
  Serious: Yes (Death, Hospitalization)
  Sender: FDA-Public Use
  Company Number: JP-BRISTOL-MYERS SQUIBB COMPANY-14714372

PATIENT
  Age: 52 Year
  Sex: Female
  Weight: 40 kg

DRUGS (17)
  1. TAXOL [Suspect]
     Indication: BREAST CANCER
     Dosage: 2ND ADMINISTERED:06NOV08  3RD:17NOV08 4TH:01DEC08 5TH:08DEC08 6TH:15DEC08
     Route: 041
     Dates: start: 20081027, end: 20081215
  2. TAXOL [Suspect]
     Indication: MALIGNANT PLEURAL EFFUSION
     Dosage: 2ND ADMINISTERED:06NOV08  3RD:17NOV08 4TH:01DEC08 5TH:08DEC08 6TH:15DEC08
     Route: 041
     Dates: start: 20081027, end: 20081215
  3. RADIOTHERAPY [Suspect]
     Indication: BREAST CANCER
     Dosage: 1 DOSAGEFORM = 50 GY
     Dates: start: 19920601, end: 19920701
  4. PREDNISOLONE [Concomitant]
     Indication: PNEUMONITIS
     Dosage: 80MG:05JAN09-20JAN09 60MG:21JAN09-11FEB09 40MG:12FEB09-02MAR09
     Dates: start: 20090105, end: 20090302
  5. CIPROFLOXACIN HCL [Concomitant]
     Indication: PNEUMONITIS
     Dates: start: 20090105, end: 20090302
  6. SULFAMETHOXAZOLE AND TRIMETHOPRIM [Concomitant]
     Indication: PNEUMONITIS
     Route: 048
     Dates: start: 20090105, end: 20090302
  7. LETROZOLE [Concomitant]
     Indication: MALIGNANT PLEURAL EFFUSION
     Dosage: FORM = TAB
     Route: 048
     Dates: start: 20080213, end: 20090105
  8. OXYCODONE HCL [Concomitant]
     Indication: CANCER PAIN
     Dosage: FORM = TAB ALSO TAKEN OXYCODONE HCL GRAN 10MGX1/D FROM 06NOV08-05JAN09
     Route: 048
     Dates: start: 20081106, end: 20090105
  9. LOXOPROFEN SODIUM [Concomitant]
     Indication: CANCER PAIN
     Dosage: HYDRATE
     Route: 048
     Dates: start: 20080818, end: 20090105
  10. DEXAMETHASONE SODIUM PHOSPHATE [Concomitant]
     Indication: DYSPNOEA
     Dosage: 4X2 MG/WEEK
     Route: 048
     Dates: start: 20081027, end: 20081215
  11. DEXAMETHASONE SODIUM PHOSPHATE [Concomitant]
     Indication: NAUSEA
     Dosage: 4X2 MG/WEEK
     Route: 048
     Dates: start: 20081027, end: 20081215
  12. DEXAMETHASONE SODIUM PHOSPHATE [Concomitant]
     Indication: OEDEMA
     Dosage: 4X2 MG/WEEK
     Route: 048
     Dates: start: 20081027, end: 20081215
  13. ZOLPIDEM TARTRATE [Concomitant]
     Indication: INSOMNIA
     Dosage: FORM = TAB
     Route: 048
     Dates: start: 20081106, end: 20090105
  14. NITRAZEPAM [Concomitant]
     Indication: INSOMNIA
     Route: 048
     Dates: start: 20081106, end: 20090105
  15. ETIZOLAM [Concomitant]
     Indication: INSOMNIA
     Route: 048
     Dates: start: 20081117, end: 20090105
  16. ETIZOLAM [Concomitant]
     Indication: DYSPNOEA
     Route: 048
     Dates: start: 20081117, end: 20090105
  17. CODEINE SULFATE [Concomitant]
     Indication: DYSPNOEA
     Dosage: HYDRATE FROM = SOLN
     Route: 048
     Dates: start: 20080818, end: 20090105

REACTIONS (4)
  - HERPES ZOSTER [None]
  - HYPERKALAEMIA [None]
  - NAUSEA [None]
  - PNEUMONITIS [None]
